FAERS Safety Report 18376898 (Version 1)
Quarter: 2020Q4

REPORT INFORMATION
  Report Type: Spontaneous
  Country: US (occurrence: US)
  Receive Date: 20201012
  Receipt Date: 20201012
  Transmission Date: 20210114
  Serious: Yes (Hospitalization, Disabling)
  Sender: FDA-Public Use
  Company Number: None

PATIENT
  Age: 45 Year
  Sex: Female
  Weight: 65.25 kg

DRUGS (5)
  1. DAILY MULTI VITAMIN ONLY [Concomitant]
  2. MOTRIN [Concomitant]
     Active Substance: IBUPROFEN
  3. CIPROFLOXACIN. [Suspect]
     Active Substance: CIPROFLOXACIN
     Indication: URINARY TRACT INFECTION
     Route: 042
     Dates: start: 20200209, end: 20200218
  4. LEVAQUIN [Suspect]
     Active Substance: LEVOFLOXACIN
  5. FLOXIN [Suspect]
     Active Substance: OFLOXACIN

REACTIONS (13)
  - Myalgia [None]
  - Pain [None]
  - Neuritis [None]
  - Intervertebral disc protrusion [None]
  - Mood altered [None]
  - Tendon disorder [None]
  - Depression [None]
  - Asthenia [None]
  - Paraesthesia [None]
  - Anxiety [None]
  - Confusional state [None]
  - Clostridium difficile infection [None]
  - Hallucination [None]

NARRATIVE: CASE EVENT DATE: 20200219
